FAERS Safety Report 4747089-8 (Version None)
Quarter: 2005Q3

REPORT INFORMATION
  Report Type: 
  Country: None (occurrence: None)
  Receive Date: 20050815
  Receipt Date: 20050801
  Transmission Date: 20060218
  Serious: Yes (Hospitalization)
  Sender: FDA-Public Use
  Company Number: CERZ-10965

PATIENT
  Age: 85 Year
  Sex: Male
  Weight: 90 kg

DRUGS (2)
  1. CEREZYME [Suspect]
     Indication: GAUCHER'S DISEASE
     Dosage: 2800 UNITS Q4WKS IV
     Route: 042
     Dates: start: 20050101
  2. CEREZYME [Suspect]
     Indication: GAUCHER'S DISEASE
     Dosage: 2800 UNITS Q2WKS IV
     Route: 042
     Dates: start: 19970424, end: 20050101

REACTIONS (9)
  - ACQUIRED OESOPHAGEAL WEB [None]
  - CARDIAC FAILURE CONGESTIVE [None]
  - CHRONIC OBSTRUCTIVE PULMONARY DISEASE [None]
  - CONDITION AGGRAVATED [None]
  - DUODENITIS [None]
  - GASTRITIS [None]
  - OESOPHAGEAL STENOSIS [None]
  - PLEURAL EFFUSION [None]
  - UPPER RESPIRATORY TRACT INFECTION [None]
